FAERS Safety Report 10123732 (Version 2)
Quarter: 2015Q1

REPORT INFORMATION
  Report Type: Other
  Country: US (occurrence: US)
  Receive Date: 20140427
  Receipt Date: 20150202
  Transmission Date: 20150720
  Serious: Yes (Hospitalization, Other)
  Sender: FDA-Public Use
  Company Number: US-GSKPPD-2014GSK024206

PATIENT
  Age: 73 Year
  Sex: Female

DRUGS (9)
  1. AVANDIA [Suspect]
     Active Substance: ROSIGLITAZONE MALEATE
     Indication: DIABETES MELLITUS
     Dosage: DATES OF AVANDIA USE COULD NOT BE CONFIRMED IN RECORDS REVIEWED.
     Route: 048
  2. COUMADIN [Concomitant]
     Active Substance: WARFARIN SODIUM
     Dosage: TREATMENT MEDICATION
     Dates: start: 201104
  3. COREG [Concomitant]
     Active Substance: CARVEDILOL
     Dosage: TREATMENT MEDICATION
     Dates: start: 201104
  4. NITROGLYCERIN. [Concomitant]
     Active Substance: NITROGLYCERIN
     Dosage: TREATMENT MEDICATION
     Route: 060
     Dates: start: 201104
  5. DIOVAN [Concomitant]
     Active Substance: VALSARTAN
     Dosage: TREATMENT MEDICATION
     Dates: start: 201104
  6. LASIX [Concomitant]
     Active Substance: FUROSEMIDE
     Dosage: TREATMENT MEDICATION
     Dates: start: 201104
  7. CARDIEZM CD [Concomitant]
     Dosage: TREATMENT MEDICATION
     Dates: start: 201104
  8. IMDUR [Concomitant]
     Active Substance: ISOSORBIDE MONONITRATE
     Dosage: TREATMENT MEDICATION
     Dates: start: 201104
  9. SPIRONOLACTONE. [Concomitant]
     Active Substance: SPIRONOLACTONE
     Dosage: TREATMENT MEDICATION
     Dates: start: 201104

REACTIONS (3)
  - Myocardial infarction [Unknown]
  - Cardiac failure congestive [Unknown]
  - Atrial fibrillation [Unknown]

NARRATIVE: CASE EVENT DATE: 20110413
